APPROVED DRUG PRODUCT: PHENTERMINE HYDROCHLORIDE AND TOPIRAMATE
Active Ingredient: PHENTERMINE HYDROCHLORIDE; TOPIRAMATE
Strength: EQ 7.5MG BASE;46MG
Dosage Form/Route: CAPSULE, EXTENDED RELEASE;ORAL
Application: A208175 | Product #002 | TE Code: AB
Applicant: DR REDDYS LABORATORIES SA
Approved: Jun 12, 2025 | RLD: No | RS: No | Type: RX